FAERS Safety Report 7069426-4 (Version None)
Quarter: 2010Q4

REPORT INFORMATION
  Report Type: 
  Country: None (occurrence: None)
  Receive Date: 20101028
  Receipt Date: 20101021
  Transmission Date: 20110411
  Serious: Yes (Disabling, Other)
  Sender: FDA-Public Use
  Company Number: ES-MERCK-1010ESP00020

PATIENT
  Age: 75 Year
  Sex: Female

DRUGS (2)
  1. HYZAAR [Suspect]
     Indication: HYPERTENSION
     Route: 048
     Dates: start: 20091101, end: 20100716
  2. HYZAAR [Suspect]
     Route: 048
     Dates: start: 20100716

REACTIONS (11)
  - ARTHRALGIA [None]
  - CONTUSION [None]
  - DRUG INTERACTION [None]
  - HYPERTENSION [None]
  - JOINT SWELLING [None]
  - PAIN IN EXTREMITY [None]
  - PARAESTHESIA [None]
  - SLEEP DISORDER [None]
  - TENDONITIS [None]
  - TINNITUS [None]
  - TREMOR [None]
